FAERS Safety Report 11025315 (Version 2)
Quarter: 2015Q2

REPORT INFORMATION
  Report Type: Other
  Country: TR (occurrence: TR)
  Receive Date: 20150414
  Receipt Date: 20150420
  Transmission Date: 20150821
  Serious: Yes (Hospitalization)
  Sender: FDA-Public Use
  Company Number: TR-EMD SERONO-8020265

PATIENT
  Age: 32 Year
  Sex: Female

DRUGS (1)
  1. SEROPHENE [Suspect]
     Active Substance: CLOMIPHENE CITRATE
     Indication: PRODUCT USED FOR UNKNOWN INDICATION

REACTIONS (1)
  - Ectopic pregnancy [Unknown]
